FAERS Safety Report 4690472-X (Version None)
Quarter: 2005Q2

REPORT INFORMATION
  Report Type: 
  Country: None (occurrence: None)
  Receive Date: 20050614
  Receipt Date: 20050614
  Transmission Date: 20051028
  Serious: Yes (Hospitalization)
  Sender: FDA-Public Use
  Company Number: None

PATIENT
  Age: 57 Year
  Sex: Female

DRUGS (3)
  1. DOXORUBICIN [Suspect]
     Indication: OVARIAN CANCER
     Dates: start: 20020201, end: 20030303
  2. DOXORUBICIN [Suspect]
     Indication: RECURRENT CANCER
     Dates: start: 20020201, end: 20030303
  3. TAMOXIFEN [Concomitant]

REACTIONS (5)
  - ATRIAL FIBRILLATION [None]
  - CARDIAC FAILURE CONGESTIVE [None]
  - CARDIOMYOPATHY [None]
  - CHEST PAIN [None]
  - VENTRICULAR HYPOKINESIA [None]
